FAERS Safety Report 5106425-3 (Version None)
Quarter: 2006Q3

REPORT INFORMATION
  Report Type: 
  Country: None (occurrence: None)
  Receive Date: 20060918
  Receipt Date: 20060912
  Transmission Date: 20061208
  Serious: Yes (Life-Threatening, Hospitalization)
  Sender: FDA-Public Use
  Company Number: ES-ROCHE-462962

PATIENT
  Age: 90 Year
  Sex: Female

DRUGS (4)
  1. DILUTOL [Suspect]
     Indication: DRUG USE FOR UNKNOWN INDICATION
     Route: 048
     Dates: start: 20050428, end: 20050919
  2. CESPLON PLUS [Suspect]
     Indication: DRUG USE FOR UNKNOWN INDICATION
     Dosage: TABLET 50/25 MG, DOSING FREQUENCY NOT KNOWN
     Route: 048
     Dates: start: 19950615, end: 20050919
  3. ORFIDAL [Suspect]
     Indication: DRUG USE FOR UNKNOWN INDICATION
     Route: 048
     Dates: end: 20050919
  4. BESITRAN [Suspect]
     Indication: DRUG USE FOR UNKNOWN INDICATION
     Route: 048
     Dates: start: 20041209, end: 20050919

REACTIONS (1)
  - RENAL IMPAIRMENT [None]
